FAERS Safety Report 6878373-X (Version None)
Quarter: 2010Q3

REPORT INFORMATION
  Report Type: 
  Country: None (occurrence: None)
  Receive Date: 20100728
  Receipt Date: 20100721
  Transmission Date: 20110219
  Serious: Yes (Other)
  Sender: FDA-Public Use
  Company Number: GB-TEVA-242416ISR

PATIENT
  Age: 49 Year
  Sex: Female
  Weight: 71 kg

DRUGS (1)
  1. ALENDRONIC ACID [Suspect]
     Indication: OSTEOPOROSIS PROPHYLAXIS
     Route: 048
     Dates: start: 20091101

REACTIONS (2)
  - INJURY [None]
  - TENDON RUPTURE [None]
